FAERS Safety Report 22285800 (Version 1)
Quarter: 2023Q2

REPORT INFORMATION
  Report Type: Spontaneous
  Country: US (occurrence: US)
  Receive Date: 20230504
  Receipt Date: 20230504
  Transmission Date: 20230722
  Serious: No
  Sender: FDA-Public Use
  Company Number: US-BAUSCHBL-2023BNL003702

PATIENT
  Sex: Female

DRUGS (2)
  1. DORZOLAMIDE HYDROCHLORIDE AND TIMOLOL MALEATE OPHTHALMIC SOLUTION [Suspect]
     Active Substance: DORZOLAMIDE HYDROCHLORIDE\TIMOLOL MALEATE
     Indication: Product used for unknown indication
     Dosage: FOR MANY YEARS
     Route: 047
  2. DORZOLAMIDE HYDROCHLORIDE AND TIMOLOL MALEATE OPHTHALMIC SOLUTION [Suspect]
     Active Substance: DORZOLAMIDE HYDROCHLORIDE\TIMOLOL MALEATE
     Route: 047
     Dates: end: 20230428

REACTIONS (7)
  - Intraocular pressure increased [Unknown]
  - Rhinorrhoea [Unknown]
  - Muscular weakness [Unknown]
  - Instillation site erythema [Unknown]
  - Nasal pruritus [Unknown]
  - Rash [Unknown]
  - Product after taste [Unknown]
